FAERS Safety Report 16943317 (Version 4)
Quarter: 2024Q1

REPORT INFORMATION
  Report Type: Spontaneous
  Country: IT (occurrence: IT)
  Receive Date: 20191022
  Receipt Date: 20240329
  Transmission Date: 20240410
  Serious: Yes (Other)
  Sender: FDA-Public Use
  Company Number: IT-MLMSERVICE-20191007-1991623-1

PATIENT
  Age: 73 Year
  Sex: Male

DRUGS (4)
  1. OXALIPLATIN [Suspect]
     Active Substance: OXALIPLATIN
     Indication: Adenocarcinoma gastric
     Dosage: UNK, QCY
     Route: 065
     Dates: start: 2018, end: 2018
  2. DOCETAXEL [Suspect]
     Active Substance: DOCETAXEL\DOCETAXEL ANHYDROUS
     Indication: Adenocarcinoma gastric
     Dosage: UNK UNK, QCY
     Route: 065
     Dates: start: 2018, end: 2018
  3. IRINOTECAN [Suspect]
     Active Substance: IRINOTECAN
     Indication: Adenocarcinoma gastric
     Dosage: UNK UNK, QCY
     Route: 065
     Dates: start: 2018, end: 2018
  4. LEUCOVORIN [Suspect]
     Active Substance: LEUCOVORIN\LEUCOVORIN CALCIUM
     Indication: Adenocarcinoma gastric
     Dosage: UNK UNK, QCY
     Route: 065
     Dates: start: 2018, end: 2018

REACTIONS (1)
  - Transdifferentiation of neoplasm [Recovered/Resolved]

NARRATIVE: CASE EVENT DATE: 20181001
